FAERS Safety Report 6550483-6 (Version None)
Quarter: 2010Q1

REPORT INFORMATION
  Report Type: 
  Country: None (occurrence: None)
  Receive Date: 20100125
  Receipt Date: 20100118
  Transmission Date: 20100710
  Serious: Yes (Hospitalization)
  Sender: FDA-Public Use
  Company Number: A0840833A

PATIENT
  Age: 56 Year
  Sex: Female

DRUGS (1)
  1. ROSIGLITAZONE MALEATE [Suspect]
     Route: 065

REACTIONS (6)
  - DYSPNOEA [None]
  - FLUID RETENTION [None]
  - MICTURITION DISORDER [None]
  - SWELLING [None]
  - WEIGHT INCREASED [None]
  - WHEEZING [None]
